FAERS Safety Report 8114960-9 (Version None)
Quarter: 2012Q1

REPORT INFORMATION
  Report Type: 
  Country: None (occurrence: None)
  Receive Date: 20120206
  Receipt Date: 20120130
  Transmission Date: 20120608
  Serious: Yes (Life-Threatening)
  Sender: FDA-Public Use
  Company Number: JP-BRISTOL-MYERS SQUIBB COMPANY-16378986

PATIENT
  Age: 76 Year
  Sex: Female
  Weight: 38 kg

DRUGS (17)
  1. ORENCIA [Suspect]
     Indication: RHEUMATOID ARTHRITIS
     Dosage: SEMIMONTHLY
     Route: 042
     Dates: start: 20111209, end: 20111222
  2. ASPIRIN [Suspect]
     Indication: SUBCLAVIAN ARTERY STENOSIS
     Route: 048
  3. PROGRAF [Concomitant]
     Route: 048
     Dates: start: 20060401
  4. AMOBAN [Concomitant]
     Route: 048
     Dates: start: 20120115
  5. ALENDRONATE SODIUM [Concomitant]
     Route: 048
     Dates: start: 20120115
  6. RHEUMATREX [Suspect]
     Indication: RHEUMATOID ARTHRITIS
     Dosage: 6MG/WK ALSO
     Route: 048
     Dates: start: 20060219
  7. SULFASALAZINE [Suspect]
  8. FOLIC ACID [Concomitant]
     Route: 048
  9. ENBREL [Concomitant]
     Dosage: 50MG/WK ALSO
  10. ETODOLAC [Suspect]
     Route: 048
  11. ONEALFA [Concomitant]
     Indication: OSTEOPOROSIS
     Route: 048
  12. ACTEMRA [Concomitant]
     Route: 042
     Dates: start: 20081105, end: 20111111
  13. AMLODIPINE [Concomitant]
     Indication: HYPERTENSION
     Route: 048
  14. SELBEX [Concomitant]
     Indication: GASTRIC ULCER
     Route: 048
  15. LANSOPRAZOLE [Concomitant]
     Route: 048
     Dates: start: 20120115
  16. FERROUS CITRATE [Concomitant]
     Dosage: 4 TABS
     Route: 048
     Dates: start: 20120115
  17. PL GRANULES [Concomitant]
     Dosage: 2 PACKETS
     Route: 048
     Dates: start: 20120115

REACTIONS (1)
  - ANAEMIA [None]
